FAERS Safety Report 6937036-2 (Version None)
Quarter: 2010Q3

REPORT INFORMATION
  Report Type: 
  Country: None (occurrence: None)
  Receive Date: 20100823
  Receipt Date: 20100810
  Transmission Date: 20110219
  Serious: Yes (Other)
  Sender: FDA-Public Use
  Company Number: PHHY2010BR53160

PATIENT
  Sex: Female

DRUGS (2)
  1. EXFORGE [Suspect]
     Dosage: 160/5 MG TWICE DAILY
  2. HIPERTIL [Concomitant]

REACTIONS (4)
  - ARTHRALGIA [None]
  - HYPERTENSION [None]
  - PAIN IN EXTREMITY [None]
  - SWELLING [None]
